FAERS Safety Report 5056397-5 (Version None)
Quarter: 2006Q3

REPORT INFORMATION
  Report Type: 
  Country: None (occurrence: None)
  Receive Date: 20060717
  Receipt Date: 20060703
  Transmission Date: 20061208
  Serious: Yes (Hospitalization)
  Sender: FDA-Public Use
  Company Number: 2006-145036-NL

PATIENT
  Sex: Male

DRUGS (2)
  1. ETONOGESTREL (BATCH #: 761032/774684) [Suspect]
     Dosage: DF
     Route: 064
     Dates: start: 20050809, end: 20051213
  2. SPIRAMYCIN [Concomitant]

REACTIONS (3)
  - CAESAREAN SECTION [None]
  - DRUG EXPOSURE DURING PREGNANCY [None]
  - NEONATAL RESPIRATORY DISTRESS SYNDROME [None]
